FAERS Safety Report 21163532 (Version 1)
Quarter: 2022Q3

REPORT INFORMATION
  Report Type: Spontaneous
  Country: JP (occurrence: JP)
  Receive Date: 20220802
  Receipt Date: 20220802
  Transmission Date: 20221026
  Serious: Yes (Other)
  Sender: FDA-Public Use
  Company Number: JP-TEVA-2022-JP-2059916

PATIENT
  Age: 53 Year
  Sex: Female

DRUGS (13)
  1. LETROZOLE [Suspect]
     Active Substance: LETROZOLE
     Indication: Breast cancer
     Dosage: 2.5 MILLIGRAM DAILY;
     Route: 065
  2. PALBOCICLIB [Suspect]
     Active Substance: PALBOCICLIB
     Indication: Breast cancer
     Dosage: DAY 1- 21 EVERY 4 WEEKS, 125 MG
     Route: 065
  3. EPIRUBICIN [Suspect]
     Active Substance: EPIRUBICIN
     Indication: Breast cancer
     Dosage: 90 MG/M2
     Route: 065
  4. CYCLOPHOSPHAMIDE [Suspect]
     Active Substance: CYCLOPHOSPHAMIDE
     Indication: Breast cancer
     Dosage: 600 MG/M2 EVERY 3 WEEKS
     Route: 065
  5. ERIBULIN [Suspect]
     Active Substance: ERIBULIN
     Indication: Breast cancer
     Dosage: ON DAY 1 AND DAY 8 EVERY 3 WEEKS, 1.4 MG/M2
     Route: 065
  6. ERIBULIN [Suspect]
     Active Substance: ERIBULIN
     Dosage: 1.1 MG/M2
     Route: 065
  7. ERIBULIN [Suspect]
     Active Substance: ERIBULIN
     Dosage: BIWEEKLY, 0.7 MG/M2
     Route: 065
  8. MIROGABALIN [Suspect]
     Active Substance: MIROGABALIN
     Indication: Neuropathy peripheral
     Dosage: 10 MILLIGRAM DAILY; DAY 1 OF CYCLE 4
     Route: 065
  9. MIROGABALIN [Suspect]
     Active Substance: MIROGABALIN
     Dosage: 20 MILLIGRAM DAILY;
     Route: 065
  10. DOCETAXEL [Suspect]
     Active Substance: DOCETAXEL
     Indication: Breast cancer
     Route: 065
  11. RABEPRAZOLE [Concomitant]
     Active Substance: RABEPRAZOLE
     Indication: Product used for unknown indication
     Dosage: 10 MILLIGRAM DAILY;
     Route: 065
  12. MAGNESIUM OXIDE [Concomitant]
     Active Substance: MAGNESIUM OXIDE
     Indication: Product used for unknown indication
     Dosage: 990 MILLIGRAM DAILY;
     Route: 065
  13. TAMOXIFEN [Concomitant]
     Active Substance: TAMOXIFEN
     Indication: Product used for unknown indication
     Route: 065

REACTIONS (4)
  - Neuropathy peripheral [Recovering/Resolving]
  - Somnolence [Unknown]
  - Head discomfort [Unknown]
  - Drug ineffective [Unknown]
